FAERS Safety Report 4704587-0 (Version None)
Quarter: 2005Q2

REPORT INFORMATION
  Report Type: 
  Country: None (occurrence: None)
  Receive Date: 20050630
  Receipt Date: 20050621
  Transmission Date: 20051028
  Serious: Yes (Life-Threatening, Hospitalization)
  Sender: FDA-Public Use
  Company Number: 2005090654

PATIENT
  Age: 55 Year
  Sex: Male

DRUGS (4)
  1. GEODON [Suspect]
     Indication: AGITATION
     Dosage: INTRAMUSCULAR
     Route: 030
  2. PROPOFOL [Suspect]
     Indication: AGITATION
  3. VERSED [Suspect]
     Indication: AGITATION
  4. ALL OTHER THERAPEUTIC PRODUCTS (ALL THERAPEUTIC PRODUCTS) [Concomitant]

REACTIONS (6)
  - AGITATION [None]
  - ANOXIA [None]
  - APNOEA [None]
  - MYOCARDIAL INFARCTION [None]
  - PULMONARY EMBOLISM [None]
  - ROAD TRAFFIC ACCIDENT [None]
